FAERS Safety Report 8998113 (Version 1)
Quarter: 2013Q1

REPORT INFORMATION
  Report Type: Spontaneous
  Country: US (occurrence: US)
  Receive Date: 20130104
  Receipt Date: 20130104
  Transmission Date: 20140127
  Serious: No
  Sender: FDA-Public Use
  Company Number: US-009507513-2011SP058970

PATIENT
  Age: 47 Year
  Sex: Female

DRUGS (7)
  1. CLARITIN-D 12 HOUR [Suspect]
     Indication: HYPERSENSITIVITY
     Dosage: UNK UNK, ONCE
     Route: 048
     Dates: end: 20111205
  2. CLARITIN-D 12 HOUR [Suspect]
     Indication: HEADACHE
     Dosage: UNK, UNKNOWN
     Route: 048
  3. CLARITIN-D 12 HOUR [Suspect]
     Indication: SINUS HEADACHE
  4. CLARITIN-D 12 HOUR [Suspect]
     Indication: MEDICAL OBSERVATION
  5. ACETAMINOPHEN (+) HYDROCODONE BITARTRATE [Suspect]
     Indication: PRODUCT USED FOR UNKNOWN INDICATION
     Dosage: UNK UNK, UNKNOWN
  6. PRILOSEC [Suspect]
     Indication: PRODUCT USED FOR UNKNOWN INDICATION
     Dosage: UNK UNK, UNKNOWN
  7. FLONASE [Concomitant]
     Dosage: UNK, UNKNOWN

REACTIONS (2)
  - Somnolence [Unknown]
  - Nervousness [Unknown]
